FAERS Safety Report 7439941-X (Version None)
Quarter: 2011Q2

REPORT INFORMATION
  Report Type: 
  Country: None (occurrence: None)
  Receive Date: 20110427
  Receipt Date: 20110420
  Transmission Date: 20111010
  Serious: Yes (Other)
  Sender: FDA-Public Use
  Company Number: US-JNJFOC-20110409643

PATIENT
  Age: 4 Year
  Sex: Male
  Weight: 22.68 kg

DRUGS (2)
  1. PEPCID COMPLETE [Suspect]
     Indication: ACCIDENTAL EXPOSURE
     Route: 048
  2. PEPCID COMPLETE [Suspect]
     Route: 048

REACTIONS (2)
  - ACCIDENTAL DRUG INTAKE BY CHILD [None]
  - ACCIDENTAL OVERDOSE [None]
